FAERS Safety Report 4390649-7 (Version None)
Quarter: 2004Q2

REPORT INFORMATION
  Report Type: 
  Country: None (occurrence: None)
  Receive Date: 20040630
  Receipt Date: 20040615
  Transmission Date: 20050107
  Serious: Yes (Hospitalization)
  Sender: FDA-Public Use
  Company Number: RENA-11038

PATIENT
  Age: 57 Year
  Sex: Female

DRUGS (2)
  1. RENAGEL [Suspect]
     Indication: HYPERPHOSPHATAEMIA
     Dosage: 3.2 G TID PO
     Route: 048
     Dates: start: 20010101
  2. STARLIX [Concomitant]

REACTIONS (4)
  - CEREBROVASCULAR ACCIDENT [None]
  - DYSPHAGIA [None]
  - PARALYSIS [None]
  - PHARMACEUTICAL PRODUCT COMPLAINT [None]
